FAERS Safety Report 25631359 (Version 2)
Quarter: 2025Q3

REPORT INFORMATION
  Report Type: Spontaneous
  Country: US (occurrence: US)
  Receive Date: 20250801
  Receipt Date: 20250806
  Transmission Date: 20251021
  Serious: No
  Sender: Haleon PLC
  Company Number: US-HALEON-2255548

PATIENT
  Sex: Female
  Weight: 39.916 kg

DRUGS (3)
  1. VOLTAREN ARTHRITIS PAIN [Suspect]
     Active Substance: DICLOFENAC SODIUM
     Indication: Costochondritis
     Dates: start: 20250728, end: 20250729
  2. ADVIL [Suspect]
     Active Substance: IBUPROFEN
     Indication: Costochondritis
     Dates: start: 20250701, end: 20250702
  3. TYLENOL [Suspect]
     Active Substance: ACETAMINOPHEN
     Indication: Costochondritis

REACTIONS (3)
  - Blood pressure decreased [Unknown]
  - Drug effective for unapproved indication [Unknown]
  - Off label use [Unknown]
